FAERS Safety Report 6147846-X (Version None)
Quarter: 2009Q2

REPORT INFORMATION
  Report Type: 
  Country: None (occurrence: None)
  Receive Date: 20090408
  Receipt Date: 20090406
  Transmission Date: 20091009
  Serious: Yes (Hospitalization, Disabling)
  Sender: FDA-Public Use
  Company Number: DE-ASTRAZENECA-2009PK01010

PATIENT
  Age: 56 Year
  Sex: Female

DRUGS (15)
  1. SEROQUEL [Suspect]
     Route: 048
     Dates: start: 20070219, end: 20070528
  2. BELOC-ZOK [Concomitant]
     Dates: start: 20070129, end: 20070528
  3. DELIX [Concomitant]
     Dates: start: 20070402, end: 20070528
  4. GASTROZEPIN [Concomitant]
     Dates: start: 20070323, end: 20070524
  5. GASTROZEPIN [Concomitant]
     Dates: start: 20070525, end: 20070528
  6. SIOFOR [Concomitant]
     Dates: start: 20070315, end: 20070508
  7. SOLIAN [Concomitant]
     Dates: start: 20070426, end: 20070523
  8. SOLIAN [Concomitant]
     Dates: start: 20070525, end: 20070525
  9. SOLIAN [Concomitant]
     Dates: start: 20070526, end: 20070528
  10. LORAZEPAM [Concomitant]
     Dates: start: 20070129, end: 20070205
  11. LORAZEPAM [Concomitant]
     Dates: start: 20070206, end: 20070213
  12. LORAZEPAM [Concomitant]
     Dates: start: 20070214, end: 20070315
  13. LORAZEPAM [Concomitant]
     Dates: start: 20070417, end: 20070514
  14. LORAZEPAM [Concomitant]
     Dates: start: 20070415, end: 20070524
  15. LORAZEPAM [Concomitant]
     Dates: start: 20070525, end: 20070528

REACTIONS (2)
  - CEREBRAL INFARCTION [None]
  - PULMONARY EMBOLISM [None]
